FAERS Safety Report 16981865 (Version 1)
Quarter: 2019Q4

REPORT INFORMATION
  Report Type: Report from Study
  Country: CA (occurrence: CA)
  Receive Date: 20191101
  Receipt Date: 20191101
  Transmission Date: 20200122
  Serious: Yes (Other)
  Sender: FDA-Public Use
  Company Number: CA-ORION CORPORATION ORION PHARMA-TREX2019-4984

PATIENT
  Age: 55 Year
  Sex: Female

DRUGS (9)
  1. COSENTYX [Suspect]
     Active Substance: SECUKINUMAB
     Route: 058
  2. ACITRETIN. [Concomitant]
     Active Substance: ACITRETIN
     Route: 065
  3. COSENTYX [Suspect]
     Active Substance: SECUKINUMAB
     Indication: PSORIASIS
     Route: 065
  4. COSENTYX [Suspect]
     Active Substance: SECUKINUMAB
     Route: 058
  5. METHOTREXATE (TRADE NAME UNKNOWN) [Suspect]
     Active Substance: METHOTREXATE
     Indication: PRODUCT USED FOR UNKNOWN INDICATION
     Route: 065
  6. COSENTYX [Suspect]
     Active Substance: SECUKINUMAB
     Route: 058
  7. REMICADE [Concomitant]
     Active Substance: INFLIXIMAB
     Route: 042
  8. HUMIRA [Concomitant]
     Active Substance: ADALIMUMAB
     Route: 058
  9. CICLOSPORIN [Suspect]
     Active Substance: CYCLOSPORINE
     Indication: PRODUCT USED FOR UNKNOWN INDICATION
     Route: 065

REACTIONS (7)
  - Seasonal allergy [Unknown]
  - Pneumonia [Unknown]
  - Cough [Unknown]
  - Psoriasis [Unknown]
  - Drug hypersensitivity [Unknown]
  - Abscess limb [Unknown]
  - Skin lesion [Unknown]
